FAERS Safety Report 6640636-0 (Version None)
Quarter: 2010Q1

REPORT INFORMATION
  Report Type: 
  Country: None (occurrence: None)
  Receive Date: 20100318
  Receipt Date: 20100305
  Transmission Date: 20100710
  Serious: Yes (Hospitalization, Other)
  Sender: FDA-Public Use
  Company Number: US-ELI_LILLY_AND_COMPANY-US200908005967

PATIENT
  Age: 47 Year
  Sex: Male

DRUGS (13)
  1. BYETTA [Suspect]
     Dosage: 10 UG, EACH MORNING
     Dates: start: 20060501, end: 20060901
  2. DIOVAN HCT [Concomitant]
     Dosage: UNK, EACH MORNING
  3. METAGLIP [Concomitant]
     Dosage: UNK, 2/D
  4. PAXIL [Concomitant]
     Dosage: 40 MG, EACH MORNING
  5. NEXIUM [Concomitant]
     Dosage: 40 MG, UNK
  6. ALLEGRA-D /01367401/ [Concomitant]
     Dosage: UNK, 2/D
  7. LIPITOR [Concomitant]
     Dosage: 10 MG, EACH EVENING
  8. AVANDIA [Concomitant]
     Dosage: 4 MG, EACH MORNING
  9. WELLBUTRIN XL [Concomitant]
     Dosage: 450 MG, EACH MORNING
  10. MULTIVITAMIN                       /00831701/ [Concomitant]
  11. VITAMIN B COMPLEX CAP [Concomitant]
  12. HUMALOG [Concomitant]
  13. INSULIN GLARGINE [Concomitant]

REACTIONS (2)
  - PANCREATITIS ACUTE [None]
  - PANCREATITIS CHRONIC [None]
